FAERS Safety Report 8469349-X (Version None)
Quarter: 2012Q2

REPORT INFORMATION
  Report Type: 
  Country: None (occurrence: None)
  Receive Date: 20120626
  Receipt Date: 20120625
  Transmission Date: 20120825
  Serious: No
  Sender: FDA-Public Use
  Company Number: US-BAYER-2012-062997

PATIENT
  Sex: Female

DRUGS (1)
  1. NATAZIA [Suspect]

REACTIONS (1)
  - WEIGHT ABNORMAL [None]
